FAERS Safety Report 5154893-3 (Version None)
Quarter: 2006Q4

REPORT INFORMATION
  Report Type: 
  Country: None (occurrence: None)
  Receive Date: 20061121
  Receipt Date: 20060828
  Transmission Date: 20070319
  Serious: Yes (Death, Life-Threatening, Other)
  Sender: FDA-Public Use
  Company Number: US-PURDUE-USA_2006_0025083

PATIENT
  Age: 86 Year
  Sex: Female
  Weight: 54 kg

DRUGS (9)
  1. OXYCONTIN [Suspect]
     Indication: PAIN
     Dosage: UNK, SEE TEXT
     Dates: end: 20050826
  2. ETHANOL [Suspect]
     Indication: ALCOHOL USE
     Dosage: UNK, UNK
  3. PROPOXYPHENE HYDROCHLORIDE [Suspect]
     Indication: DRUG USE FOR UNKNOWN INDICATION
     Dosage: UNK, UNK
  4. PROMETHAZINE [Suspect]
     Indication: DRUG USE FOR UNKNOWN INDICATION
     Dosage: UNK, UNK
  5. ACETAMINOPHEN [Suspect]
     Indication: DRUG USE FOR UNKNOWN INDICATION
     Dosage: UNK, UNK
  6. HYDROCODONE [Suspect]
     Indication: DRUG USE FOR UNKNOWN INDICATION
     Dosage: UNK, UNK
  7. HYDROMORPHONE HCL (SIMILAR TO NDA 21-044) [Suspect]
     Indication: DRUG USE FOR UNKNOWN INDICATION
     Dosage: UNK, UNK
  8. MORPHINE SULFATE [Suspect]
     Indication: DRUG USE FOR UNKNOWN INDICATION
     Dosage: UNK, UNK
  9. DIHYDROCODEINE/CAFFEINE/ACETAMINOPHEN (SIMILAR TO ANDA 88-584) [Suspect]
     Indication: DRUG USE FOR UNKNOWN INDICATION

REACTIONS (10)
  - ACCIDENTAL DEATH [None]
  - CARDIAC ARREST [None]
  - DIARRHOEA [None]
  - INAPPROPRIATE SCHEDULE OF DRUG ADMINISTRATION [None]
  - MULTIPLE DRUG OVERDOSE ACCIDENTAL [None]
  - PAIN [None]
  - RESPIRATORY ARREST [None]
  - RESPIRATORY RATE DECREASED [None]
  - SPINAL COMPRESSION FRACTURE [None]
  - VOMITING [None]
